FAERS Safety Report 4715783-0 (Version None)
Quarter: 2005Q3

REPORT INFORMATION
  Report Type: 
  Country: None (occurrence: None)
  Receive Date: 20050718
  Receipt Date: 20050622
  Transmission Date: 20060218
  Serious: Yes (Other)
  Sender: FDA-Public Use
  Company Number: CA-NOVOPROD-245002

PATIENT
  Age: 32 Year
  Sex: Male
  Weight: 95 kg

DRUGS (5)
  1. NOVOSEVEN [Suspect]
     Indication: BRAIN CONTUSION
     Dosage: 80 UG/KG, SINGLE
     Route: 042
     Dates: start: 20050617, end: 20050618
  2. PHENYTOIN [Concomitant]
     Indication: PROPHYLAXIS
     Dosage: 1400 MG, QD
     Route: 042
     Dates: start: 20050620
  3. POTASSIUM PHOSPHATE MONOBASIC [Concomitant]
     Dosage: 15 MMOL, QD
     Route: 042
     Dates: start: 20050620, end: 20050620
  4. GABAPENTIN [Concomitant]
     Indication: PROPHYLAXIS
     Dosage: 900 MG, QD
     Route: 048
     Dates: start: 20050618
  5. RANITIDINE [Concomitant]
     Indication: BLOOD PH DECREASED
     Dosage: 300 MG, QD
     Dates: start: 20050618, end: 20050627

REACTIONS (1)
  - DEEP VEIN THROMBOSIS [None]
